FAERS Safety Report 24562187 (Version 2)
Quarter: 2024Q4

REPORT INFORMATION
  Report Type: Spontaneous
  Country: ES (occurrence: ES)
  Receive Date: 20241029
  Receipt Date: 20241118
  Transmission Date: 20250115
  Serious: Yes (Other)
  Sender: MERZ
  Company Number: ES-ACORDA THERAPEUTICS IRELAND LIMITED-ACO_178132_2024

PATIENT
  Age: 76 Year
  Sex: Female
  Weight: 57 kg

DRUGS (9)
  1. INBRIJA [Suspect]
     Active Substance: LEVODOPA
     Indication: Product used for unknown indication
     Dosage: UNK
     Dates: start: 2024
  2. CARBIDOPA\LEVODOPA [Suspect]
     Active Substance: CARBIDOPA\LEVODOPA
     Indication: Parkinson^s disease
     Dosage: 240 MG/ML + 12 MG/ML, 0.03 ML/H HIGH, BASE AND LOW FLOW.HIGH FLOW DOSES 0.48 ML/H,BASE FLOW 0.43 ML/
     Route: 058
     Dates: start: 20240927
  3. CARBIDOPA\LEVODOPA [Suspect]
     Active Substance: CARBIDOPA\LEVODOPA
     Dosage: 240 MG/ML + 12 MG/ML, HIGH FLOW 0.45 ML/H, BASAL FLOW 0.40 ML/H AND LOW FLOW 0.35 ML/H/
     Route: 058
     Dates: start: 20240927, end: 202409
  4. CARBIDOPA\LEVODOPA [Suspect]
     Active Substance: CARBIDOPA\LEVODOPA
     Dosage: 240 MG/ML + 12 MG/ML, DOSE ADJUSTMENT, HIGH FLOW 0.40 ML/H  AND BASELINE FLOW 0.35 ML/H.
     Route: 058
     Dates: start: 20240913, end: 202409
  5. CARBIDOPA\LEVODOPA [Suspect]
     Active Substance: CARBIDOPA\LEVODOPA
     Dosage: 240 MG/ML + 12 MG/ML
     Route: 058
     Dates: start: 20240829, end: 2024
  6. CARBIDOPA\LEVODOPA [Concomitant]
     Active Substance: CARBIDOPA\LEVODOPA
     Indication: Product used for unknown indication
     Dosage: TWICE SINEMET PLUS + EXTRA DOSE OF 0.30 ML
     Route: 065
  7. CARBIDOPA\LEVODOPA [Concomitant]
     Active Substance: CARBIDOPA\LEVODOPA
     Dosage: BASELINE FLOW FROM 0.35 ML/H AT NIGHT TO A HIGH FLOW OF 0.4 M
     Route: 065
  8. XADAGO [Concomitant]
     Active Substance: SAFINAMIDE MESYLATE
     Indication: Product used for unknown indication
     Dosage: 50 MILLIGRAM
     Route: 065
     Dates: start: 20240912
  9. SINEMET [Concomitant]
     Active Substance: CARBIDOPA\LEVODOPA
     Indication: Product used for unknown indication
     Dosage: 4 UNITS, HOUR
     Route: 048
     Dates: start: 2024

REACTIONS (10)
  - Asphyxia [Unknown]
  - Drug intolerance [Unknown]
  - Nodule [Recovered/Resolved]
  - Motor dysfunction [Recovering/Resolving]
  - Freezing phenomenon [Not Recovered/Not Resolved]
  - Hallucination, visual [Unknown]
  - Hallucination [Unknown]
  - Malaise [Unknown]
  - Fatigue [Unknown]
  - On and off phenomenon [Unknown]

NARRATIVE: CASE EVENT DATE: 20240101
